FAERS Safety Report 13665042 (Version 1)
Quarter: 2017Q2

REPORT INFORMATION
  Report Type: Spontaneous
  Country: JP (occurrence: JP)
  Receive Date: 20170619
  Receipt Date: 20170619
  Transmission Date: 20170830
  Serious: Yes (Other)
  Sender: FDA-Public Use
  Company Number: JP-REGENERON PHARMACEUTICALS, INC.-2017-17187

PATIENT

DRUGS (2)
  1. EYLEA [Suspect]
     Active Substance: AFLIBERCEPT
     Indication: RETINAL VEIN OCCLUSION
     Dosage: UNK
     Route: 031
  2. EYLEA [Suspect]
     Active Substance: AFLIBERCEPT
     Dosage: 2 MG, ONCE (FIFTH INJECTION)
     Route: 031
     Dates: start: 20170221, end: 20170221

REACTIONS (4)
  - Exophthalmos [Recovering/Resolving]
  - Eye movement disorder [Recovering/Resolving]
  - Diplopia [Unknown]
  - Eyelid oedema [Recovering/Resolving]

NARRATIVE: CASE EVENT DATE: 20170222
